FAERS Safety Report 16979968 (Version 1)
Quarter: 2019Q4

REPORT INFORMATION
  Report Type: Report from Study
  Country: CA (occurrence: CA)
  Receive Date: 20191031
  Receipt Date: 20191031
  Transmission Date: 20200122
  Serious: Yes (Hospitalization, Other)
  Sender: FDA-Public Use
  Company Number: CA-BAUSCH-BL-2018-034479

PATIENT
  Age: 46 Year
  Sex: Male

DRUGS (3)
  1. SILIQ [Suspect]
     Active Substance: BRODALUMAB
     Indication: PSORIASIS
     Dosage: 210 MG/1.5 ML (WEEK 0, 1 AND 2 AS WEEKLY ONCE)
     Route: 058
     Dates: start: 20181116, end: 2018
  2. SILIQ [Suspect]
     Active Substance: BRODALUMAB
     Dosage: 210 MG/1.5 ML
     Route: 058
     Dates: start: 2019, end: 2019
  3. SILIQ [Suspect]
     Active Substance: BRODALUMAB
     Dosage: 210 MG/1.5 ML
     Route: 058
     Dates: start: 20190729, end: 201909

REACTIONS (10)
  - Non-Hodgkin^s lymphoma [Unknown]
  - Product dose omission [Unknown]
  - Infection [Unknown]
  - Therapeutic product effect incomplete [Unknown]
  - Blister infected [Unknown]
  - Cough [Not Recovered/Not Resolved]
  - Constipation [Recovering/Resolving]
  - Adverse event [Unknown]
  - Oropharyngeal pain [Not Recovered/Not Resolved]
  - Wound infection [Unknown]

NARRATIVE: CASE EVENT DATE: 2018
